FAERS Safety Report 10155214 (Version 1)
Quarter: 2014Q2

REPORT INFORMATION
  Report Type: Spontaneous
  Country: US (occurrence: None)
  Receive Date: 20140505
  Receipt Date: 20140505
  Transmission Date: 20141212
  Serious: No
  Sender: FDA-Public Use
  Company Number: None

PATIENT
  Age: 47 Year
  Sex: Male

DRUGS (2)
  1. LEXAPRO 5 MG [Suspect]
     Indication: ANXIETY
     Route: 048
  2. LEXAPRO 5 MG [Suspect]
     Indication: DEPRESSION
     Route: 048

REACTIONS (1)
  - Amnesia [None]
